FAERS Safety Report 23280664 (Version 1)
Quarter: 2023Q4

REPORT INFORMATION
  Report Type: Spontaneous
  Country: FI (occurrence: FI)
  Receive Date: 20231211
  Receipt Date: 20231211
  Transmission Date: 20240109
  Serious: Yes (Hospitalization, Other)
  Sender: FDA-Public Use
  Company Number: FI-HALEON-FICH2023051687

PATIENT
  Age: 75 Year
  Sex: Female

DRUGS (4)
  1. ELIQUIS [Suspect]
     Active Substance: APIXABAN
     Indication: Product used for unknown indication
     Dosage: UNK
  2. PANADOL [Suspect]
     Active Substance: ACETAMINOPHEN
     Indication: Pyrexia
     Dosage: UNK
     Dates: start: 202310, end: 20231018
  3. ROSUVASTATIN [Suspect]
     Active Substance: ROSUVASTATIN
     Indication: Product used for unknown indication
     Dosage: 10 MG
  4. ROSUVASTATIN [Suspect]
     Active Substance: ROSUVASTATIN
     Dosage: 15 MG

REACTIONS (12)
  - Nasal oedema [Unknown]
  - Acute febrile neutrophilic dermatosis [Unknown]
  - Swelling [Unknown]
  - Erythema [Unknown]
  - Drug hypersensitivity [Unknown]
  - Blood disorder [Unknown]
  - Skin discolouration [Unknown]
  - Chromaturia [Unknown]
  - Blood urine present [Unknown]
  - Pain in extremity [Not Recovered/Not Resolved]
  - Oedema peripheral [Unknown]
  - Burning sensation [Unknown]

NARRATIVE: CASE EVENT DATE: 20231001
